FAERS Safety Report 4472688-0 (Version None)
Quarter: 2004Q4

REPORT INFORMATION
  Report Type: 
  Country: None (occurrence: None)
  Receive Date: 20041012
  Receipt Date: 20041012
  Transmission Date: 20050328
  Serious: No
  Sender: FDA-Public Use
  Company Number: None

PATIENT

DRUGS (1)
  1. TEGRETOL [Suspect]
     Dosage: 300 MG TID

REACTIONS (2)
  - CONDITION AGGRAVATED [None]
  - CONVULSION [None]
